FAERS Safety Report 5743415-1 (Version None)
Quarter: 2008Q2

REPORT INFORMATION
  Report Type: 
  Country: None (occurrence: None)
  Receive Date: 20080519
  Receipt Date: 20080519
  Transmission Date: 20081010
  Serious: Yes (Other)
  Sender: FDA-Public Use
  Company Number: None

PATIENT
  Sex: Female
  Weight: 49.8957 kg

DRUGS (1)
  1. DOXYCYCLINE 100MG MUTUAL [Suspect]
     Indication: PNEUMONIA
     Dosage: 100MG 2X DAY PO
     Route: 048
     Dates: start: 20080511, end: 20080515

REACTIONS (1)
  - TACHYCARDIA [None]
